FAERS Safety Report 10958810 (Version 2)
Quarter: 2015Q2

REPORT INFORMATION
  Report Type: Spontaneous
  Country: DK (occurrence: DK)
  Receive Date: 20150326
  Receipt Date: 20150422
  Transmission Date: 20150821
  Serious: Yes (Hospitalization)
  Sender: FDA-Public Use
  Company Number: DK-ASTRAZENECA-2015SE25889

PATIENT
  Age: 49 Year
  Sex: Male

DRUGS (12)
  1. LITAREX [Interacting]
     Active Substance: LITHIUM CITRATE
     Indication: BIPOLAR DISORDER
     Route: 048
  2. LITAREX [Interacting]
     Active Substance: LITHIUM CITRATE
     Indication: BIPOLAR DISORDER
     Route: 048
  3. LAMOTRIGIN [Concomitant]
     Active Substance: LAMOTRIGINE
  4. MARPLAN [Concomitant]
     Active Substance: ISOCARBOXAZID
  5. ENACODAN [Concomitant]
  6. METFORMINHYDROCHLORID [Concomitant]
  7. CIRCADIN [Concomitant]
     Active Substance: MELATONIN
  8. OXAPAX [Concomitant]
     Active Substance: OXAZEPAM
  9. PANTOPRAZOLNATRIUMSESQUIHYDRAT [Concomitant]
  10. FORXIGA [Suspect]
     Active Substance: DAPAGLIFLOZIN
     Indication: TYPE 2 DIABETES MELLITUS
     Route: 048
     Dates: start: 20141219
  11. ABILIFY [Concomitant]
     Active Substance: ARIPIPRAZOLE
  12. ZOPICLONE [Concomitant]
     Active Substance: ZOPICLONE

REACTIONS (3)
  - Antipsychotic drug level below therapeutic [Not Recovered/Not Resolved]
  - Drug interaction [Unknown]
  - Bipolar I disorder [Unknown]

NARRATIVE: CASE EVENT DATE: 201412
